FAERS Safety Report 8028254-3 (Version None)
Quarter: 2012Q1

REPORT INFORMATION
  Report Type: 
  Country: None (occurrence: None)
  Receive Date: 20120106
  Receipt Date: 20111226
  Transmission Date: 20120608
  Serious: Yes (Hospitalization)
  Sender: FDA-Public Use
  Company Number: JP-SHIRE-ALL1-2011-05134

PATIENT
  Sex: Male
  Weight: 54 kg

DRUGS (8)
  1. MESALAMINE [Suspect]
     Indication: COLITIS ULCERATIVE
     Dates: start: 20111206, end: 20111216
  2. MESALAMINE [Suspect]
     Indication: COLITIS ULCERATIVE
     Dates: start: 20111206, end: 20111216
  3. ALLEGRA [Concomitant]
     Indication: SINUSITIS
     Dosage: 60 MG, 2X/DAY:BID
     Route: 048
     Dates: start: 20111206, end: 20111210
  4. RULID [Concomitant]
     Indication: SINUSITIS
     Dosage: 150 MG, 2X/DAY:BID
     Route: 048
     Dates: start: 20111206, end: 20111210
  5. LOXONIN [Concomitant]
     Indication: SINUSITIS
     Dosage: 60 MG, AS REQ'D
     Route: 048
     Dates: start: 20111130
  6. LOXONIN [Concomitant]
     Indication: HEADACHE
  7. LOXONIN [Concomitant]
     Indication: NASOPHARYNGITIS
  8. PLACEBO [Suspect]
     Indication: COLITIS ULCERATIVE
     Dates: start: 20111206, end: 20111216

REACTIONS (1)
  - PERICARDIAL EFFUSION [None]
